FAERS Safety Report 7277744-X (Version None)
Quarter: 2010Q4

REPORT INFORMATION
  Report Type: 
  Country: None (occurrence: None)
  Receive Date: 20101215
  Receipt Date: 20100819
  Transmission Date: 20110411
  Serious: Yes (Other)
  Sender: FDA-Public Use
  Company Number: DSA_43472_2010

PATIENT
  Sex: Male
  Weight: 89.8122 kg

DRUGS (3)
  1. XENAZINE [Suspect]
     Indication: DYSKINESIA
     Dosage: (25 MG QID ORAL)
     Route: 048
     Dates: start: 20100223, end: 20100401
  2. XENAZINE [Suspect]
     Indication: MEIGE'S SYNDROME
     Dosage: (25 MG QID ORAL)
     Route: 048
     Dates: start: 20100223, end: 20100401
  3. VALIUM [Concomitant]

REACTIONS (1)
  - DYSPHAGIA [None]
